FAERS Safety Report 4639831-1 (Version None)
Quarter: 2005Q2

REPORT INFORMATION
  Report Type: 
  Country: None (occurrence: None)
  Receive Date: 20050415
  Receipt Date: 20050330
  Transmission Date: 20051028
  Serious: Yes (Other)
  Sender: FDA-Public Use
  Company Number: A03200500892

PATIENT
  Age: 54 Year
  Sex: Female
  Weight: 75.7507 kg

DRUGS (6)
  1. ELOXATIN [Suspect]
     Indication: COLON CANCER METASTATIC
     Dosage: 250 MG Q3W - INTRAVENOUS NOS
     Route: 042
     Dates: start: 20050328, end: 20050328
  2. ELOXATIN [Suspect]
     Indication: METASTASES TO LIVER
     Dosage: 250 MG Q3W - INTRAVENOUS NOS
     Route: 042
     Dates: start: 20050328, end: 20050328
  3. BEVACIZUMAB [Concomitant]
  4. CAPECITABINE [Concomitant]
  5. PALONOSETRON [Concomitant]
  6. DEXAMETHASONE [Concomitant]

REACTIONS (2)
  - DIFFICULTY IN WALKING [None]
  - MOVEMENT DISORDER [None]
